FAERS Safety Report 8349766-9 (Version None)
Quarter: 2012Q2

REPORT INFORMATION
  Report Type: 
  Country: None (occurrence: None)
  Receive Date: 20120510
  Receipt Date: 20120503
  Transmission Date: 20120825
  Serious: Yes (Hospitalization, Other)
  Sender: FDA-Public Use
  Company Number: US-BAYER-2011-107925

PATIENT
  Age: 28 Year
  Sex: Female
  Weight: 68.027 kg

DRUGS (5)
  1. YAZ [Suspect]
     Indication: ACNE
  2. YAZ [Suspect]
     Indication: CONTRACEPTION
     Dosage: UNK
     Route: 048
     Dates: start: 20090202, end: 20091106
  3. SYNTHROID [Concomitant]
     Dosage: UNK
     Dates: start: 20091106
  4. IBUPROFEN [Concomitant]
     Dosage: UNK
     Dates: start: 20091106
  5. XANAX [Concomitant]
     Indication: ANXIETY

REACTIONS (8)
  - INJURY [None]
  - ACTIVITIES OF DAILY LIVING IMPAIRED [None]
  - PAIN IN EXTREMITY [None]
  - DIZZINESS [None]
  - DYSPNOEA [None]
  - ANXIETY [None]
  - PALPITATIONS [None]
  - DEEP VEIN THROMBOSIS [None]
